FAERS Safety Report 16278015 (Version 1)
Quarter: 2019Q2

REPORT INFORMATION
  Report Type: Report from Study
  Country: DE (occurrence: DE)
  Receive Date: 20190506
  Receipt Date: 20190506
  Transmission Date: 20190711
  Serious: Yes (Hospitalization)
  Sender: FDA-Public Use
  Company Number: DE-PFIZER INC-2019185065

PATIENT
  Age: 58 Year
  Sex: Female
  Weight: 72 kg

DRUGS (3)
  1. ABRAXANE [Suspect]
     Active Substance: PACLITAXEL
     Indication: NON-SMALL CELL LUNG CANCER
     Dosage: 100 MG/M2, 1X/DAY
     Route: 041
     Dates: start: 20170515, end: 20171030
  2. METOPROLOL SUCCINAT BETA [Concomitant]
     Indication: PROPHYLAXIS
     Dosage: 47.5 MG, 1X/DAY
     Route: 048
  3. CARBOPLATIN. [Suspect]
     Active Substance: CARBOPLATIN
     Indication: NON-SMALL CELL LUNG CANCER
     Dosage: UNK (5 MG*MIN/ML)
     Route: 041
     Dates: start: 20170515, end: 20171016

REACTIONS (2)
  - Pneumothorax spontaneous [Recovered/Resolved]
  - Dyspnoea [Unknown]

NARRATIVE: CASE EVENT DATE: 20170713
